FAERS Safety Report 7512747-9 (Version None)
Quarter: 2011Q2

REPORT INFORMATION
  Report Type: 
  Country: None (occurrence: None)
  Receive Date: 20110531
  Receipt Date: 20110513
  Transmission Date: 20111010
  Serious: Yes (Hospitalization)
  Sender: FDA-Public Use
  Company Number: A0789891A

PATIENT
  Age: 62 Year
  Sex: Female
  Weight: 68.2 kg

DRUGS (7)
  1. AVANDIA [Suspect]
     Dosage: 4MG PER DAY
     Route: 048
     Dates: start: 20020101, end: 20030101
  2. SYNTHROID [Concomitant]
  3. PREVACID [Concomitant]
  4. GLUCOPHAGE [Concomitant]
  5. ZANTAC [Concomitant]
  6. ALTACE [Concomitant]
  7. MICRONASE [Concomitant]

REACTIONS (3)
  - CORONARY ARTERY DISEASE [None]
  - MYOCARDIAL ISCHAEMIA [None]
  - MYOCARDIAL INFARCTION [None]
